FAERS Safety Report 14602995 (Version 2)
Quarter: 2018Q1

REPORT INFORMATION
  Report Type: Report from Study
  Country: US (occurrence: US)
  Receive Date: 20180306
  Receipt Date: 20180320
  Transmission Date: 20180509
  Serious: Yes (Other)
  Sender: FDA-Public Use
  Company Number: US-AMGEN-USASL2018002020

PATIENT
  Age: 64 Year
  Sex: Female

DRUGS (2)
  1. REPATHA [Suspect]
     Active Substance: EVOLOCUMAB
     Indication: BLOOD CHOLESTEROL INCREASED
     Dosage: 140 MG, Q2WK
     Route: 065
     Dates: start: 201701
  2. REPATHA [Suspect]
     Active Substance: EVOLOCUMAB
     Indication: HYPERCHOLESTEROLAEMIA
     Dosage: 140 MG, Q3WK
     Route: 065
     Dates: start: 201801

REACTIONS (24)
  - Rubber sensitivity [Unknown]
  - Angle closure glaucoma [Unknown]
  - Blepharitis [Unknown]
  - Back pain [Unknown]
  - Angina pectoris [Unknown]
  - Ocular rosacea [Unknown]
  - Dry eye [Unknown]
  - Blood cholesterol decreased [Unknown]
  - Oesophageal spasm [Unknown]
  - Asthma [Unknown]
  - Malaise [Unknown]
  - Weight increased [Unknown]
  - Injection site haemorrhage [Unknown]
  - Injection site bruising [Unknown]
  - Peripheral swelling [Unknown]
  - Swelling [Unknown]
  - Abdominal pain upper [Unknown]
  - Muscle spasms [Unknown]
  - Off label use [Unknown]
  - Joint swelling [Unknown]
  - Flushing [Unknown]
  - Arthralgia [Unknown]
  - Punctate keratitis [Unknown]
  - Hypoaesthesia [Unknown]

NARRATIVE: CASE EVENT DATE: 201712
